FAERS Safety Report 9620846 (Version 1)
Quarter: 2013Q4

REPORT INFORMATION
  Report Type: Spontaneous
  Country: GB (occurrence: GB)
  Receive Date: 20131015
  Receipt Date: 20131015
  Transmission Date: 20140711
  Serious: Yes (Other)
  Sender: FDA-Public Use
  Company Number: GB-ELI_LILLY_AND_COMPANY-GB201310001120

PATIENT
  Age: 34 Year
  Sex: Female

DRUGS (1)
  1. CYMBALTA [Suspect]
     Indication: PAIN
     Dosage: 90 MG, QD
     Dates: start: 201211

REACTIONS (5)
  - Night sweats [Recovered/Resolved]
  - Headache [Recovered/Resolved]
  - Nausea [Recovered/Resolved]
  - Fatigue [Recovered/Resolved]
  - Drug withdrawal syndrome [Recovered/Resolved]
